FAERS Safety Report 7728094-6 (Version None)
Quarter: 2011Q3

REPORT INFORMATION
  Report Type: 
  Country: None (occurrence: None)
  Receive Date: 20110905
  Receipt Date: 20110831
  Transmission Date: 20111222
  Serious: Yes (Other)
  Sender: FDA-Public Use
  Company Number: US-BRISTOL-MYERS SQUIBB COMPANY-16021420

PATIENT
  Age: 43 Year
  Sex: Female
  Weight: 61 kg

DRUGS (4)
  1. ABILIFY [Interacting]
     Indication: MOOD SWINGS
     Dates: start: 20110717
  2. TRAMADOL HYDROCHLORIDE [Concomitant]
  3. ALCOHOL [Interacting]
  4. PAXIL [Suspect]
     Dosage: DOSE INCREASED TO 40 MG FROM 20MG.

REACTIONS (4)
  - ALCOHOL INTERACTION [None]
  - LOSS OF CONSCIOUSNESS [None]
  - WEIGHT INCREASED [None]
  - AGGRESSION [None]
